FAERS Safety Report 11193278 (Version 1)
Quarter: 2015Q2

REPORT INFORMATION
  Report Type: Spontaneous
  Country: US (occurrence: None)
  Receive Date: 20150603
  Receipt Date: 20150603
  Transmission Date: 20150821
  Serious: No
  Sender: FDA-Public Use
  Company Number: 2015TASUS000680

PATIENT
  Age: 71 Year
  Sex: Female
  Weight: 117.9 kg

DRUGS (13)
  1. LISINOPRIL. [Concomitant]
     Active Substance: LISINOPRIL
  2. VITAMIN D (COLECALCIFEROL) [Concomitant]
  3. HYDROCHLOROTHIAZIDE. [Concomitant]
     Active Substance: HYDROCHLOROTHIAZIDE
  4. TIZANIDINE (TIZANIDINE) [Concomitant]
     Active Substance: TIZANIDINE
  5. DICLOFENAC SODIUM ER (DICLOFENAC SODIUM) [Concomitant]
  6. AMLODIPINE (AMLODIPINE BESILATE) [Concomitant]
  7. CYCLOBENZAPRINE HCL (CYCLOBENZAPRINE HYDROCHLORIDE) [Concomitant]
  8. LYRICA [Concomitant]
     Active Substance: PREGABALIN
  9. LOPRESSOR [Concomitant]
     Active Substance: METOPROLOL TARTRATE
  10. LANTUS [Concomitant]
     Active Substance: INSULIN GLARGINE
  11. HETLIOZ [Suspect]
     Active Substance: TASIMELTEON
     Indication: CIRCADIAN RHYTHM SLEEP DISORDER
     Route: 048
     Dates: start: 20140909
  12. CITALOPRAM (CITALOPRAM HYDROBROMIDE) [Concomitant]
  13. VICODIN [Concomitant]
     Active Substance: ACETAMINOPHEN\HYDROCODONE BITARTRATE

REACTIONS (6)
  - Drug effect decreased [None]
  - Urinary tract infection [None]
  - Headache [None]
  - Influenza [None]
  - Middle insomnia [None]
  - Myalgia [None]

NARRATIVE: CASE EVENT DATE: 20150109
